FAERS Safety Report 8955261 (Version 1)
Quarter: 2012Q4

REPORT INFORMATION
  Report Type: Spontaneous
  Country: US (occurrence: None)
  Receive Date: 20121204
  Receipt Date: 20121204
  Transmission Date: 20130627
  Serious: No
  Sender: FDA-Public Use
  Company Number: None

PATIENT
  Sex: Male
  Weight: 26.76 kg

DRUGS (1)
  1. ADDERALL XR 30 MG [Suspect]
     Indication: ADHD
     Dosage: XR 30 qd
     Dates: start: 20100212

REACTIONS (2)
  - Drug intolerance [None]
  - Product substitution issue [None]
